FAERS Safety Report 19551643 (Version 1)
Quarter: 2021Q3

REPORT INFORMATION
  Report Type: Spontaneous
  Country: US (occurrence: US)
  Receive Date: 20210715
  Receipt Date: 20210715
  Transmission Date: 20211014
  Serious: No
  Sender: FDA-Public Use
  Company Number: US-AMGEN-USASP2021107394

PATIENT
  Age: 34 Year
  Sex: Female

DRUGS (8)
  1. CAZIANT [Concomitant]
     Active Substance: DESOGESTREL\ETHINYL ESTRADIOL
  2. METHOCARBAMOL. [Concomitant]
     Active Substance: METHOCARBAMOL
  3. OTEZLA [Suspect]
     Active Substance: APREMILAST
     Indication: PSORIASIS
     Dosage: 30 MILLIGRAM, BID
     Route: 048
     Dates: start: 20210621
  4. VITAMIN D3 [Concomitant]
     Active Substance: CHOLECALCIFEROL
  5. BETAMETH [BETAMETHASONE VALERATE] [Concomitant]
  6. OMEGA 3 [DOCOSAHEXAENOIC ACID;EICOSAPENTAENOIC ACID] [Concomitant]
     Active Substance: DOCONEXENT\ICOSAPENT
  7. CLINDAMYCIN. [Concomitant]
     Active Substance: CLINDAMYCIN
  8. IBUPROFEN. [Concomitant]
     Active Substance: IBUPROFEN

REACTIONS (2)
  - Abdominal discomfort [Recovered/Resolved]
  - Nausea [Recovered/Resolved]

NARRATIVE: CASE EVENT DATE: 2021
